FAERS Safety Report 4677118-1 (Version None)
Quarter: 2005Q2

REPORT INFORMATION
  Report Type: 
  Country: None (occurrence: None)
  Receive Date: 20050526
  Receipt Date: 20050526
  Transmission Date: 20051028
  Serious: No
  Sender: FDA-Public Use
  Company Number: None

PATIENT
  Age: 45 Year
  Sex: Female
  Weight: 60.3284 kg

DRUGS (1)
  1. ROGAINE 5 [Suspect]
     Dosage: TWICE DAILY   3 DAYS
     Dates: start: 20050427, end: 20050503

REACTIONS (9)
  - ARTHRALGIA [None]
  - BACK PAIN [None]
  - DIZZINESS [None]
  - FLUID RETENTION [None]
  - HEADACHE [None]
  - MYALGIA [None]
  - SWELLING [None]
  - URTICARIA [None]
  - WEIGHT INCREASED [None]
